FAERS Safety Report 26045063 (Version 2)
Quarter: 2025Q4

REPORT INFORMATION
  Report Type: Report from Study
  Country: ZA (occurrence: ZA)
  Receive Date: 20251114
  Receipt Date: 20251204
  Transmission Date: 20260118
  Serious: Yes (Other)
  Sender: ROCHE
  Company Number: ZA-ROCHE-10000429835

PATIENT
  Sex: Female

DRUGS (1)
  1. VABYSMO [Suspect]
     Active Substance: FARICIMAB-SVOA
     Indication: Macular degeneration
     Dosage: ON 01-DEC-2025, SHE RECEIVED 6 MG VABYSMO.
     Route: 050
     Dates: start: 20250424

REACTIONS (1)
  - Retinal thickening [Unknown]
